FAERS Safety Report 16087010 (Version 1)
Quarter: 2019Q1

REPORT INFORMATION
  Report Type: Spontaneous
  Country: US (occurrence: US)
  Receive Date: 20190319
  Receipt Date: 20190319
  Transmission Date: 20190418
  Serious: No
  Sender: FDA-Public Use
  Company Number: US-ASTRAZENECA-2019SE37313

PATIENT
  Sex: Male

DRUGS (13)
  1. SULFAMETHOXAZOLE [Concomitant]
     Active Substance: SULFAMETHOXAZOLE
     Indication: PROSTATE INFECTION
     Dosage: TWO TIMES A DAY
     Route: 048
     Dates: start: 201902
  2. FASENRA [Suspect]
     Active Substance: BENRALIZUMAB
     Indication: ASTHMA
     Dosage: MONTHLY
     Route: 058
     Dates: start: 20190121
  3. FASENRA [Suspect]
     Active Substance: BENRALIZUMAB
     Indication: ASTHMA
     Dosage: MONTHLY
     Route: 058
     Dates: start: 20190221
  4. PRAVASTATIN. [Concomitant]
     Active Substance: PRAVASTATIN
     Indication: BLOOD CHOLESTEROL ABNORMAL
     Route: 048
  5. TUDORZA [Suspect]
     Active Substance: ACLIDINIUM BROMIDE
     Indication: ASTHMA
     Route: 055
  6. BUDESONIDE. [Suspect]
     Active Substance: BUDESONIDE
     Indication: NASAL POLYPS
     Route: 045
  7. MONTELUKAST [Concomitant]
     Active Substance: MONTELUKAST SODIUM
     Indication: INFLAMMATION
     Route: 048
  8. FASENRA [Suspect]
     Active Substance: BENRALIZUMAB
     Indication: ASTHMA
     Dosage: MONTHLY
     Route: 058
     Dates: start: 20190221
  9. SYMBICORT [Suspect]
     Active Substance: BUDESONIDE\FORMOTEROL FUMARATE DIHYDRATE
     Indication: ASTHMA
     Dosage: 160, 2 PUFFS TWICE A DAY, TWO TIMES A DAY
     Route: 055
  10. DOXYCYCLINE HYCLATE. [Concomitant]
     Active Substance: DOXYCYCLINE HYCLATE
     Indication: INFECTION
     Route: 048
  11. AMLODIPINE [Concomitant]
     Active Substance: AMLODIPINE BESYLATE
     Indication: BLOOD PRESSURE ABNORMAL
     Route: 048
  12. FASENRA [Suspect]
     Active Substance: BENRALIZUMAB
     Indication: ASTHMA
     Dosage: MONTHLY
     Route: 058
     Dates: start: 20190121
  13. PLAVIX [Concomitant]
     Active Substance: CLOPIDOGREL BISULFATE
     Indication: ANTICOAGULANT THERAPY
     Route: 048

REACTIONS (15)
  - Pruritus [Unknown]
  - Dust allergy [Unknown]
  - Prostatomegaly [Unknown]
  - Pollakiuria [Unknown]
  - Erythema [Unknown]
  - Burning sensation [Unknown]
  - Infection [Unknown]
  - Blister [Unknown]
  - Dysuria [Unknown]
  - Eosinophil count abnormal [Unknown]
  - Anosmia [Unknown]
  - Rash [Unknown]
  - Constipation [Unknown]
  - Insomnia [Unknown]
  - Micturition disorder [Unknown]
